FAERS Safety Report 11826970 (Version 2)
Quarter: 2016Q2

REPORT INFORMATION
  Report Type: Spontaneous
  Country: US (occurrence: US)
  Receive Date: 20151211
  Receipt Date: 20160607
  Transmission Date: 20160815
  Serious: No
  Sender: FDA-Public Use
  Company Number: US-SA-2015SA177250

PATIENT
  Age: 74 Year
  Sex: Female
  Weight: 72.5 kg

DRUGS (7)
  1. LANTUS [Concomitant]
     Active Substance: INSULIN GLARGINE
     Dates: start: 200407
  2. SOLOSTAR [Concomitant]
     Active Substance: DEVICE
     Indication: TYPE 1 DIABETES MELLITUS
     Dates: start: 201510, end: 20151026
  3. DIAZEPAM. [Concomitant]
     Active Substance: DIAZEPAM
     Indication: ANXIETY DISORDER
  4. TOUJEO [Suspect]
     Active Substance: INSULIN GLARGINE
     Indication: TYPE 1 DIABETES MELLITUS
     Dosage: DOSE:46 UNIT(S)
     Route: 065
     Dates: start: 201509, end: 20151026
  5. SYNTHROID [Concomitant]
     Active Substance: LEVOTHYROXINE SODIUM
     Dosage: 75 MCC
  6. MONTELUKAST [Concomitant]
     Active Substance: MONTELUKAST SODIUM
  7. NOVOLOG [Concomitant]
     Active Substance: INSULIN ASPART
     Indication: TYPE 1 DIABETES MELLITUS
     Dates: start: 200407

REACTIONS (8)
  - Muscle spasms [Not Recovered/Not Resolved]
  - Dyspnoea [Unknown]
  - Chest pain [Recovering/Resolving]
  - Arthralgia [Recovering/Resolving]
  - Blood glucose increased [Unknown]
  - Confusional state [Unknown]
  - Night sweats [Unknown]
  - Muscle injury [Unknown]

NARRATIVE: CASE EVENT DATE: 201509
